FAERS Safety Report 17608589 (Version 1)
Quarter: 2020Q2

REPORT INFORMATION
  Report Type: Report from Study
  Country: SE (occurrence: SE)
  Receive Date: 20200401
  Receipt Date: 20200401
  Transmission Date: 20200713
  Serious: Yes (Hospitalization, Other)
  Sender: FDA-Public Use
  Company Number: SE-ROCHE-2547848

PATIENT

DRUGS (1)
  1. RITUXIMAB. [Suspect]
     Active Substance: RITUXIMAB
     Indication: MULTIPLE SCLEROSIS
     Route: 042

REACTIONS (23)
  - Deep vein thrombosis [Unknown]
  - Abdominal pain [Unknown]
  - Vertigo [Unknown]
  - Fungal infection [Unknown]
  - Tonsillitis [Unknown]
  - Localised infection [Unknown]
  - Intentional product use issue [Unknown]
  - Off label use [Unknown]
  - Viral infection [Unknown]
  - Upper respiratory tract infection [Unknown]
  - Throat irritation [Unknown]
  - Syncope [Unknown]
  - Sinusitis [Unknown]
  - Pneumonia [Unknown]
  - Influenza [Unknown]
  - Eye infection [Unknown]
  - Lyme disease [Unknown]
  - Impetigo [Unknown]
  - Herpes zoster [Unknown]
  - Urinary tract infection [Unknown]
  - Chest pain [Unknown]
  - Dyspnoea [Unknown]
  - Rash [Unknown]
